FAERS Safety Report 9485777 (Version 1)
Quarter: 2013Q3

REPORT INFORMATION
  Report Type: Spontaneous
  Country: US (occurrence: None)
  Receive Date: 20130827
  Receipt Date: 20130827
  Transmission Date: 20140515
  Serious: Yes (Hospitalization)
  Sender: FDA-Public Use
  Company Number: None

PATIENT
  Age: 66 Year
  Sex: Male
  Weight: 80.5 kg

DRUGS (1)
  1. LISINOPRIL [Suspect]
     Dosage: MG, PO
     Route: 048
     Dates: start: 20130516, end: 20130604

REACTIONS (3)
  - Angioedema [None]
  - Drooling [None]
  - Speech disorder [None]
